FAERS Safety Report 20809291 (Version 1)
Quarter: 2022Q2

REPORT INFORMATION
  Report Type: Spontaneous
  Country: US (occurrence: None)
  Receive Date: 20220509
  Receipt Date: 20220509
  Transmission Date: 20220721
  Serious: No
  Sender: FDA-Public Use
  Company Number: None

PATIENT
  Age: 70 Year
  Sex: Male
  Weight: 111 kg

DRUGS (1)
  1. FLUTICASONE FUROATE\SALMETEROL XINAFOATE [Suspect]
     Active Substance: FLUTICASONE FUROATE\SALMETEROL XINAFOATE
     Indication: Asthma
     Dosage: OTHER QUANTITY : 1 PUFF;?FREQUENCY : TWICE A DAY;?
     Route: 055
     Dates: start: 20210922, end: 20211026

REACTIONS (3)
  - Cough [None]
  - Throat irritation [None]
  - Dysphonia [None]

NARRATIVE: CASE EVENT DATE: 20211025
